FAERS Safety Report 26092000 (Version 1)
Quarter: 2025Q4

REPORT INFORMATION
  Report Type: Spontaneous
  Country: GB (occurrence: GB)
  Receive Date: 20251126
  Receipt Date: 20251126
  Transmission Date: 20260117
  Serious: Yes (Hospitalization, Disabling, Other)
  Sender: OCTAPHARMA
  Company Number: None

PATIENT
  Sex: Female

DRUGS (2)
  1. FIBRYGA [Suspect]
     Active Substance: FIBRINOGEN HUMAN
     Indication: Postpartum haemorrhage
     Dosage: 4G
     Route: 050
     Dates: start: 20250814
  2. FIBRYGA [Suspect]
     Active Substance: FIBRINOGEN HUMAN

REACTIONS (5)
  - Thrombophlebitis [Recovering/Resolving]
  - Thrombosis [Recovering/Resolving]
  - Motor dysfunction [Recovered/Resolved]
  - Swelling [Unknown]
  - Asthenia [Recovered/Resolved]

NARRATIVE: CASE EVENT DATE: 20250814
